FAERS Safety Report 5044362-3 (Version None)
Quarter: 2006Q2

REPORT INFORMATION
  Report Type: 
  Country: None (occurrence: None)
  Receive Date: 20060629
  Receipt Date: 20060619
  Transmission Date: 20061013
  Serious: Yes (Hospitalization)
  Sender: FDA-Public Use
  Company Number: 2006077643

PATIENT
  Age: 52 Year
  Sex: Female
  Weight: 53 kg

DRUGS (4)
  1. TAHOR (ATORVASTATIN) [Suspect]
     Indication: HYPERCHOLESTEROLAEMIA
     Dosage: 80 MG (80 MG, DAILY), ORAL
     Route: 048
     Dates: start: 20040615, end: 20060427
  2. CLOPIDOGREL [Concomitant]
  3. CELIPROLOL (CELIPROLOL) [Concomitant]
  4. LYSODREN [Concomitant]

REACTIONS (2)
  - CHOLESTASIS [None]
  - RHABDOMYOLYSIS [None]
